FAERS Safety Report 10426720 (Version 2)
Quarter: 2014Q4

REPORT INFORMATION
  Report Type: Spontaneous
  Country: US (occurrence: None)
  Receive Date: 20140722
  Receipt Date: 20141020
  Transmission Date: 20150528
  Serious: No
  Sender: FDA-Public Use
  Company Number: AEGR000551

PATIENT
  Age: 52 Year
  Sex: Female
  Weight: 77.1 kg

DRUGS (2)
  1. NITROGLYCERIN. [Suspect]
     Active Substance: NITROGLYCERIN
     Indication: PRODUCT USED FOR UNKNOWN INDICATION
     Dates: start: 20140416
  2. JUXTAPID [Suspect]
     Active Substance: LOMITAPIDE MESYLATE
     Indication: BLOOD CHOLESTEROL
     Route: 048
     Dates: start: 20140507, end: 201406

REACTIONS (4)
  - Off label use [None]
  - Diarrhoea [None]
  - Rash [None]
  - Weight increased [None]

NARRATIVE: CASE EVENT DATE: 201405
